FAERS Safety Report 11230746 (Version 1)
Quarter: 2015Q2

REPORT INFORMATION
  Report Type: Spontaneous
  Country: CA (occurrence: None)
  Receive Date: 20150629
  Receipt Date: 20150629
  Transmission Date: 20150821
  Serious: Yes (Hospitalization)
  Sender: FDA-Public Use
  Company Number: None

PATIENT
  Age: 16 Year
  Sex: Female
  Weight: 68.04 kg

DRUGS (1)
  1. ALESSE 28 [Suspect]
     Active Substance: ETHINYL ESTRADIOL\LEVONORGESTREL
     Indication: URTICARIA
     Route: 048
     Dates: start: 20150626

REACTIONS (2)
  - Adverse drug reaction [None]
  - Urticaria [None]

NARRATIVE: CASE EVENT DATE: 20150626
